FAERS Safety Report 5932817-6 (Version None)
Quarter: 2008Q4

REPORT INFORMATION
  Report Type: 
  Country: None (occurrence: None)
  Receive Date: 20081023
  Receipt Date: 20060626
  Transmission Date: 20090506
  Serious: Yes (Other)
  Sender: FDA-Public Use
  Company Number: 2006AL002193

PATIENT
  Age: 61 Year
  Sex: Female

DRUGS (11)
  1. CITALOPRAM HYDROBROMIDE [Suspect]
     Indication: ANXIETY
     Dosage: 10 MG; PO
     Route: 048
     Dates: start: 20060426, end: 20060516
  2. AMPICILLIN [Concomitant]
  3. BECLOMETHASONE DIPROPIONATE [Concomitant]
  4. CARBOCISTEINE [Concomitant]
  5. IPRATROPIUM BROMIDE [Concomitant]
  6. LANSOPRAZOLE [Concomitant]
  7. PREDNISOLONE [Concomitant]
  8. ALBUTEROL SULFATE [Concomitant]
  9. SEREVENT [Concomitant]
  10. SLO-PHYLLIN [Concomitant]
  11. ALBUTEROL SULFATE [Concomitant]

REACTIONS (3)
  - BRONCHOSPASM [None]
  - ECZEMA [None]
  - URINARY RETENTION [None]
